FAERS Safety Report 5832718-8 (Version None)
Quarter: 2008Q3

REPORT INFORMATION
  Report Type: 
  Country: None (occurrence: None)
  Receive Date: 20080731
  Receipt Date: 20080715
  Transmission Date: 20090109
  Serious: Yes (Hospitalization)
  Sender: FDA-Public Use
  Company Number: 8034762

PATIENT
  Age: 3 Year
  Sex: Female
  Weight: 17 kg

DRUGS (1)
  1. XOZAL [Suspect]
     Indication: EAR INFECTION
     Dosage: 2.5 ML ONCE PO
     Route: 048
     Dates: start: 20080715, end: 20080715

REACTIONS (1)
  - WRONG DRUG ADMINISTERED [None]
